FAERS Safety Report 11135481 (Version 3)
Quarter: 2015Q3

REPORT INFORMATION
  Report Type: Spontaneous
  Country: US (occurrence: None)
  Receive Date: 20150521
  Receipt Date: 20150702
  Transmission Date: 20151125
  Serious: Yes (Hospitalization, Other)
  Sender: FDA-Public Use
  Company Number: ADR-2015-00979

PATIENT
  Sex: Female

DRUGS (2)
  1. BACLOFEN INTRATHECAL [Suspect]
     Active Substance: BACLOFEN
     Indication: SPINAL PAIN
  2. MORPHINE INTRATHECAL [Suspect]
     Active Substance: MORPHINE

REACTIONS (6)
  - Device issue [None]
  - Neuralgia [None]
  - Hypersensitivity [None]
  - Pain in extremity [None]
  - Malaise [None]
  - Incorrect drug administration rate [None]
